FAERS Safety Report 6192823-6 (Version None)
Quarter: 2009Q2

REPORT INFORMATION
  Report Type: 
  Country: None (occurrence: None)
  Receive Date: 20090518
  Receipt Date: 20090506
  Transmission Date: 20091009
  Serious: Yes (Other)
  Sender: FDA-Public Use
  Company Number: AU-NOVOPROD-287032

PATIENT
  Age: 72 Year
  Sex: Female

DRUGS (9)
  1. NOVOSEVEN [Suspect]
     Indication: HAEMORRHAGE
     Dosage: 3.6 MG, SINGLE
     Route: 042
     Dates: start: 20070823, end: 20070823
  2. HEPARIN [Concomitant]
     Dates: start: 20070822
  3. RED BLOOD CELLS [Concomitant]
     Dosage: 15
  4. FRESH FROZEN PLASMA [Concomitant]
     Dosage: 8
  5. CRYOPRECIPITATES [Concomitant]
     Dosage: 4
  6. PLATELETS [Concomitant]
     Dosage: 1
  7. GELOFUSINE                         /00203801/ [Concomitant]
     Dosage: 2000
  8. ALBUMIN                            /01102501/ [Concomitant]
     Dosage: 500
  9. DEXTROSE [Concomitant]

REACTIONS (1)
  - DERMATITIS EXFOLIATIVE [None]
